FAERS Safety Report 9286761 (Version 1)
Quarter: 2013Q2

REPORT INFORMATION
  Report Type: Spontaneous
  Country: MY (occurrence: None)
  Receive Date: 20130509
  Receipt Date: 20130509
  Transmission Date: 20140414
  Serious: Yes (Other)
  Sender: FDA-Public Use
  Company Number: MY-1198042

PATIENT
  Age: 8 Month
  Sex: Female

DRUGS (6)
  1. CYCLOMYDRIL [Suspect]
     Indication: RETINOPATHY OF PREMATURITY
     Route: 047
     Dates: start: 20111115, end: 20111115
  2. CAFFEINE [Concomitant]
  3. FERRIC AMMONIUM CITRATE [Concomitant]
  4. MULTIVITAMIN [Concomitant]
  5. FOLIC ACID [Concomitant]
  6. RECORMON [Concomitant]

REACTIONS (1)
  - Necrotising colitis [None]
